FAERS Safety Report 6986066-3 (Version None)
Quarter: 2010Q3

REPORT INFORMATION
  Report Type: 
  Country: None (occurrence: None)
  Receive Date: 20100910
  Receipt Date: 20100826
  Transmission Date: 20110219
  Serious: Yes (Life-Threatening, Other)
  Sender: FDA-Public Use
  Company Number: JPI-P-011992

PATIENT
  Age: 38 Year
  Sex: Male
  Weight: 90.7194 kg

DRUGS (4)
  1. XYREM [Suspect]
     Indication: NARCOLEPSY
     Dosage: UNKNOWN, ORAL; 9 GM (4.5 GM, 2 IN 1 D) ORAL
     Route: 048
     Dates: end: 20100822
  2. XYREM [Suspect]
     Indication: NARCOLEPSY
     Dosage: UNKNOWN, ORAL; 9 GM (4.5 GM, 2 IN 1 D) ORAL
     Route: 048
     Dates: start: 20100201
  3. XYREM [Suspect]
     Indication: NARCOLEPSY
     Dosage: UNKNOWN, ORAL; 9 GM (4.5 GM, 2 IN 1 D) ORAL
     Route: 048
     Dates: start: 20100824
  4. DIPHENHYDRAMINE HCL [Concomitant]

REACTIONS (4)
  - DEHYDRATION [None]
  - HEAT STROKE [None]
  - HYPERTENSION [None]
  - WEIGHT DECREASED [None]
